FAERS Safety Report 9161626 (Version 1)
Quarter: 2013Q1

REPORT INFORMATION
  Report Type: Report from Study
  Country: DE (occurrence: DE)
  Receive Date: 20130313
  Receipt Date: 20130313
  Transmission Date: 20140127
  Serious: Yes (Other)
  Sender: FDA-Public Use
  Company Number: PHHY2013DE023785

PATIENT
  Sex: Female

DRUGS (8)
  1. FTY 720 [Suspect]
     Indication: MULTIPLE SCLEROSIS
     Dosage: 0.5 MG, QD
     Route: 048
     Dates: start: 20110512
  2. APROVEL [Concomitant]
     Dosage: UNK UKN, UNK
     Dates: start: 20070605
  3. DOLORMIN (IBUPROFEN LYSINATE) [Concomitant]
     Dosage: UNK UKN, UNK
     Dates: start: 20050102
  4. VITAMIN D [Concomitant]
     Dosage: 1000 IU, UNK
     Dates: start: 20120801
  5. ZINKOROTAT [Concomitant]
     Dosage: 60 MG, UNK
     Dates: start: 20121109
  6. ACETYLCYSTEIN [Concomitant]
     Dosage: UNK
     Dates: start: 20110204, end: 20110211
  7. CEFPODOXIM [Concomitant]
     Dosage: 200 MG, UNK
     Dates: start: 20120909, end: 20120916
  8. AMOXICLAV [Concomitant]
     Dosage: UNK
     Dates: start: 20120924, end: 20121103

REACTIONS (1)
  - Trigeminal neuralgia [Not Recovered/Not Resolved]
